FAERS Safety Report 24211570 (Version 1)
Quarter: 2024Q3

REPORT INFORMATION
  Report Type: Report from Study
  Country: AR (occurrence: AR)
  Receive Date: 20240814
  Receipt Date: 20240814
  Transmission Date: 20241017
  Serious: Yes (Hospitalization)
  Sender: ABBVIE
  Company Number: AR-ABBVIE-5877645

PATIENT
  Age: 29 Year
  Sex: Male

DRUGS (1)
  1. RINVOQ [Suspect]
     Active Substance: UPADACITINIB
     Indication: Crohn^s disease
     Dosage: FORM STRENGTH: 30 MILLIGRAM?DRUG END DATE: 2024
     Route: 048
     Dates: start: 20240404

REACTIONS (1)
  - Gastrointestinal viral infection [Recovering/Resolving]

NARRATIVE: CASE EVENT DATE: 20240805
